FAERS Safety Report 8186010-X (Version None)
Quarter: 2012Q1

REPORT INFORMATION
  Report Type: 
  Country: None (occurrence: None)
  Receive Date: 20120306
  Receipt Date: 20120228
  Transmission Date: 20120608
  Serious: Yes (Other)
  Sender: FDA-Public Use
  Company Number: US-BIOGENIDEC-2010BI005477

PATIENT
  Age: 45 Year
  Sex: Male
  Weight: 82 kg

DRUGS (35)
  1. VIAGRA [Concomitant]
  2. KEPPRA [Concomitant]
     Indication: PRODUCT USED FOR UNKNOWN INDICATION
  3. FERREX [Concomitant]
  4. NYSTATIN [Concomitant]
  5. BACLOFEN [Concomitant]
  6. BACLOFEN [Concomitant]
  7. APLISOL [Concomitant]
  8. OXYCONTIN [Concomitant]
  9. BACLOFEN [Concomitant]
  10. RITALIN [Concomitant]
  11. CELEXA [Concomitant]
  12. LEVOTHYROXINE SODIUM [Concomitant]
     Route: 048
  13. NITROFURANTOIN [Concomitant]
  14. POTASSIUM CHLORIDE [Concomitant]
  15. VICODIN [Concomitant]
     Indication: PAIN
  16. HYCOSAMINE [Concomitant]
  17. RITALIN [Concomitant]
  18. PERCOCET [Concomitant]
  19. TRAZODONE HCL [Concomitant]
     Indication: PRODUCT USED FOR UNKNOWN INDICATION
  20. VITAMIN D [Concomitant]
     Indication: SUPPLEMENTATION THERAPY
  21. RANITIDINE [Concomitant]
     Route: 048
  22. BACLOFEN [Concomitant]
  23. RITALIN [Concomitant]
     Indication: FATIGUE
  24. MULTIPLE VITAMIN [Concomitant]
     Indication: SUPPLEMENTATION THERAPY
  25. IBUPROFEN [Concomitant]
  26. ABILIFY [Concomitant]
  27. DULCOLAX [Concomitant]
  28. TYSABRI [Suspect]
     Indication: MULTIPLE SCLEROSIS
     Route: 042
     Dates: start: 20070426, end: 20100111
  29. BACLOFEN [Concomitant]
     Indication: MUSCLE SPASTICITY
  30. MIRALAX [Concomitant]
     Indication: PRODUCT USED FOR UNKNOWN INDICATION
  31. CALCIUM [Concomitant]
     Indication: SUPPLEMENTATION THERAPY
  32. LEVOXYL [Concomitant]
  33. LYRICA [Concomitant]
  34. SYNTHROID [Concomitant]
  35. MUCINEX [Concomitant]
     Indication: PRODUCT USED FOR UNKNOWN INDICATION

REACTIONS (4)
  - DEPRESSION [None]
  - IMMUNE RECONSTITUTION SYNDROME [None]
  - URINARY TRACT INFECTION [None]
  - PROGRESSIVE MULTIFOCAL LEUKOENCEPHALOPATHY [None]
